FAERS Safety Report 9105928 (Version 1)
Quarter: 2013Q1

REPORT INFORMATION
  Report Type: Spontaneous
  Country: FR (occurrence: FR)
  Receive Date: 20130220
  Receipt Date: 20130220
  Transmission Date: 20140127
  Serious: Yes (Disabling)
  Sender: FDA-Public Use
  Company Number: FR-009507513-1302FRA006582

PATIENT
  Sex: Male

DRUGS (1)
  1. CELESTENE 4MG/1ML [Suspect]

REACTIONS (1)
  - Nerve injury [Unknown]
